FAERS Safety Report 7489779-2 (Version None)
Quarter: 2011Q2

REPORT INFORMATION
  Report Type: 
  Country: None (occurrence: None)
  Receive Date: 20110519
  Receipt Date: 20110512
  Transmission Date: 20111010
  Serious: No
  Sender: FDA-Public Use
  Company Number: US-BIOGENIDEC-2011BI018136

PATIENT
  Age: 58 Year
  Sex: Female

DRUGS (2)
  1. TYSABRI [Suspect]
     Indication: MULTIPLE SCLEROSIS
     Route: 042
     Dates: start: 20081113
  2. TYSABRI [Suspect]
     Route: 042
     Dates: start: 20070516, end: 20080403

REACTIONS (3)
  - STRESS [None]
  - VISUAL IMPAIRMENT [None]
  - COGNITIVE DISORDER [None]
